FAERS Safety Report 16243667 (Version 1)
Quarter: 2019Q2

REPORT INFORMATION
  Report Type: Spontaneous
  Country: EE (occurrence: EE)
  Receive Date: 20190426
  Receipt Date: 20190426
  Transmission Date: 20190711
  Serious: Yes (Life-Threatening, Hospitalization)
  Sender: FDA-Public Use
  Company Number: EE-TEVA-2019-EE-1042019

PATIENT
  Age: 35 Year
  Sex: Female

DRUGS (3)
  1. NO-SPA 20 MG/ML [Concomitant]
     Indication: THREATENED LABOUR
     Route: 030
     Dates: start: 20190327, end: 20190401
  2. NIFEDIPIN RATIOPHARM [Suspect]
     Active Substance: NIFEDIPINE
     Indication: THREATENED LABOUR
     Route: 048
  3. NIFEDIPIN RATIOPHARM [Suspect]
     Active Substance: NIFEDIPINE
     Route: 048

REACTIONS (4)
  - Tachycardia paroxysmal [Recovered/Resolved]
  - Vascular headache [Recovered/Resolved]
  - Asthenia [Recovered/Resolved]
  - Vision blurred [Recovered/Resolved]

NARRATIVE: CASE EVENT DATE: 20190327
